FAERS Safety Report 10601391 (Version 1)
Quarter: 2014Q4

REPORT INFORMATION
  Report Type: Spontaneous
  Country: US (occurrence: None)
  Receive Date: 20141120
  Receipt Date: 20141120
  Transmission Date: 20150529
  Serious: No
  Sender: FDA-Public Use
  Company Number: LIT-14-0049-W

PATIENT
  Age: 44 Year
  Sex: Male

DRUGS (2)
  1. AZITHROMYCIN [Suspect]
     Active Substance: AZITHROMYCIN ANHYDROUS
     Indication: RESPIRATORY TRACT INFECTION
  2. PROMETHAZINE HCL W/DEXTROMETHORPHAN HBR [Concomitant]

REACTIONS (6)
  - Disseminated intravascular coagulation [None]
  - Drug reaction with eosinophilia and systemic symptoms [None]
  - Renal failure [None]
  - General physical health deterioration [None]
  - Septic shock [None]
  - Pulmonary oedema [None]

NARRATIVE: CASE EVENT DATE: 2014
